FAERS Safety Report 9843240 (Version 1)
Quarter: 2014Q1

REPORT INFORMATION
  Report Type: Spontaneous
  Country: US (occurrence: US)
  Receive Date: 20140124
  Receipt Date: 20140124
  Transmission Date: 20141002
  Serious: No
  Sender: FDA-Public Use
  Company Number: US-NOVEN-13US008387

PATIENT
  Sex: Female

DRUGS (3)
  1. BRISDELLE [Suspect]
     Indication: MOOD SWINGS
     Dosage: 7.5 MG, EVENING
     Route: 048
  2. BRISDELLE [Suspect]
     Indication: DEPRESSION
  3. ESTRADIOL [Concomitant]
     Indication: MENOPAUSAL SYMPTOMS

REACTIONS (2)
  - Off label use [Not Recovered/Not Resolved]
  - No adverse event [None]
